FAERS Safety Report 6274512-2 (Version None)
Quarter: 2009Q3

REPORT INFORMATION
  Report Type: 
  Country: None (occurrence: None)
  Receive Date: 20090716
  Receipt Date: 20090706
  Transmission Date: 20100115
  Serious: Yes (Life-Threatening)
  Sender: FDA-Public Use
  Company Number: CIO09013248

PATIENT
  Sex: Female

DRUGS (1)
  1. CREST PRO-HEALTH TOOTHPASTE, FORM/FLAVOR UNKNOWN (SODIUM POLYPHOSPHATE [Suspect]
     Dosage: 1 APPLIC, 1 ONLY, INTRAORAL

REACTIONS (12)
  - CHEILITIS [None]
  - GINGIVAL PAIN [None]
  - GLOSSITIS [None]
  - GLOSSODYNIA [None]
  - HYPERSENSITIVITY [None]
  - LIP SWELLING [None]
  - OEDEMA MOUTH [None]
  - ORAL DISCOMFORT [None]
  - PHARYNGEAL OEDEMA [None]
  - STOMATITIS [None]
  - SWOLLEN TONGUE [None]
  - VOCAL CORD PARALYSIS [None]
